FAERS Safety Report 6666411-9 (Version None)
Quarter: 2010Q2

REPORT INFORMATION
  Report Type: 
  Country: None (occurrence: None)
  Receive Date: 20100402
  Receipt Date: 20100323
  Transmission Date: 20101027
  Serious: Yes (Other)
  Sender: FDA-Public Use
  Company Number: DE-GENENTECH-299784

PATIENT
  Sex: Male

DRUGS (1)
  1. MABTHERA [Suspect]
     Indication: B-CELL LYMPHOMA
     Dosage: UNK
     Route: 065

REACTIONS (2)
  - DEMENTIA [None]
  - WEIGHT DECREASED [None]
